FAERS Safety Report 15138465 (Version 1)
Quarter: 2018Q3

REPORT INFORMATION
  Report Type: Spontaneous
  Country: AT (occurrence: AT)
  Receive Date: 20180713
  Receipt Date: 20180713
  Transmission Date: 20181010
  Serious: Yes (Death, Other)
  Sender: FDA-Public Use
  Company Number: AT-009507513-1806AUT007560

PATIENT
  Sex: Female

DRUGS (1)
  1. LETERMOVIR [Suspect]
     Active Substance: LETERMOVIR
     Indication: CYTOMEGALOVIRUS INFECTION
     Dosage: UNK
     Route: 048
     Dates: start: 20180618

REACTIONS (6)
  - Ileus [Fatal]
  - Bacterial disease carrier [Fatal]
  - Sepsis [Fatal]
  - Pathogen resistance [Fatal]
  - Cytomegalovirus infection [Fatal]
  - Off label use [Unknown]

NARRATIVE: CASE EVENT DATE: 2018
